FAERS Safety Report 15516577 (Version 1)
Quarter: 2018Q4

REPORT INFORMATION
  Report Type: Spontaneous
  Country: KR (occurrence: KR)
  Receive Date: 20181017
  Receipt Date: 20181017
  Transmission Date: 20190205
  Serious: Yes (Other)
  Sender: FDA-Public Use
  Company Number: KR-ALKEM LABORATORIES LIMITED-KR-ALKEM-2018-07910

PATIENT
  Age: 38 Year
  Sex: Female

DRUGS (5)
  1. LINEZOLID. [Suspect]
     Active Substance: LINEZOLID
     Indication: PULMONARY TUBERCULOSIS
     Dosage: 300 MG, OD
     Route: 065
  2. CYCLOSERINE. [Concomitant]
     Active Substance: CYCLOSERINE
     Indication: PULMONARY TUBERCULOSIS
     Dosage: UNKNOWN
     Route: 065
  3. LINEZOLID. [Suspect]
     Active Substance: LINEZOLID
     Dosage: 600 MG, OD
     Route: 065
  4. KANAMYCIN [Concomitant]
     Active Substance: KANAMYCIN\KANAMYCIN A SULFATE
     Indication: PULMONARY TUBERCULOSIS
     Dosage: UNKNOWN
     Route: 065
  5. MOXIFLOXACIN. [Concomitant]
     Active Substance: MOXIFLOXACIN
     Indication: PULMONARY TUBERCULOSIS
     Dosage: UNKNOWN
     Route: 065

REACTIONS (3)
  - Optic neuropathy [Recovered/Resolved]
  - Neuropathy peripheral [Recovering/Resolving]
  - Neurotoxicity [Recovered/Resolved]
